FAERS Safety Report 10361765 (Version 2)
Quarter: 2015Q1

REPORT INFORMATION
  Report Type: Spontaneous
  Country: CA (occurrence: CA)
  Receive Date: 20140805
  Receipt Date: 20150126
  Transmission Date: 20150720
  Serious: Yes (Life-Threatening, Hospitalization)
  Sender: FDA-Public Use
  Company Number: CA-ROCHE-1443298

PATIENT
  Age: 53 Year
  Sex: Male
  Weight: 54 kg

DRUGS (3)
  1. PEGASYS [Suspect]
     Active Substance: PEGINTERFERON ALFA-2A
     Indication: HEPATITIS C
     Dosage: 9 MONTH THERAPY DURATION (274 DAYS)
     Route: 058
  2. RIBAVIRIN. [Suspect]
     Active Substance: RIBAVIRIN
     Indication: HEPATITIS C
     Route: 065
  3. INCIVEK [Suspect]
     Active Substance: TELAPREVIR
     Indication: HEPATITIS C
     Route: 065

REACTIONS (7)
  - Bacteraemia [Unknown]
  - Necrotising fasciitis streptococcal [Unknown]
  - Cellulitis [Unknown]
  - Necrotising fasciitis staphylococcal [Unknown]
  - Acute kidney injury [Unknown]
  - Compartment syndrome [Unknown]
  - Septic shock [Unknown]
